FAERS Safety Report 4277539-5 (Version None)
Quarter: 2004Q1

REPORT INFORMATION
  Report Type: 
  Country: None (occurrence: None)
  Receive Date: 20040121
  Receipt Date: 20040116
  Transmission Date: 20041129
  Serious: Yes (Other)
  Sender: FDA-Public Use
  Company Number: 200314321BCC

PATIENT
  Age: 86 Year
  Sex: Female
  Weight: 64.8644 kg

DRUGS (1)
  1. ALEVE [Suspect]
     Indication: PAIN
     Dosage: 220 MG, PRN, ORAL
     Route: 048

REACTIONS (2)
  - DIVERTICULUM [None]
  - HAEMATOCHEZIA [None]
